FAERS Safety Report 19085581 (Version 3)
Quarter: 2021Q3

REPORT INFORMATION
  Report Type: Other
  Country: FI (occurrence: FI)
  Receive Date: 20210401
  Receipt Date: 20210805
  Transmission Date: 20211014
  Serious: Yes (Congenital Anomaly)
  Sender: FDA-Public Use
  Company Number: FI-CELLTRION INC.-2021FI004194

PATIENT

DRUGS (9)
  1. INFLIXIMAB (UNKNOWN) [Suspect]
     Active Substance: INFLIXIMAB
     Indication: OLIGOARTHRITIS
     Dosage: UNK
     Route: 064
     Dates: start: 201906, end: 20200403
  2. FOLIC ACID. [Concomitant]
     Active Substance: FOLIC ACID
     Dosage: 5 MG, WEEKLY
     Route: 064
  3. IMUREL [Concomitant]
     Active Substance: AZATHIOPRINE SODIUM
     Dosage: 150 MG, DAILY
     Route: 064
  4. OXIKLORIN [Concomitant]
     Active Substance: HYDROXYCHLOROQUINE SULFATE
     Dosage: 300 MG, DAILY
     Route: 064
  5. CIMZIA [Suspect]
     Active Substance: CERTOLIZUMAB PEGOL
     Indication: PRODUCT USED FOR UNKNOWN INDICATION
     Dosage: UNK
     Route: 064
     Dates: start: 20200605, end: 202008
  6. CIMZIA [Suspect]
     Active Substance: CERTOLIZUMAB PEGOL
     Dosage: UNK
     Route: 064
     Dates: start: 2020, end: 2020
  7. THYROXIN [Concomitant]
     Active Substance: LEVOTHYROXINE
     Dosage: UNK
     Route: 064
  8. PREDNISOLON [Concomitant]
     Active Substance: PREDNISOLONE
     Dosage: 5 MG, DAILY
     Route: 064
  9. INFLIXIMAB (UNKNOWN) [Suspect]
     Active Substance: INFLIXIMAB
     Dosage: UNK
     Route: 064
     Dates: start: 2020, end: 2020

REACTIONS (17)
  - Congenital jaw malformation [Recovered/Resolved with Sequelae]
  - Anal atresia [Recovered/Resolved with Sequelae]
  - VACTERL syndrome [Recovered/Resolved with Sequelae]
  - CHARGE syndrome [Recovered/Resolved with Sequelae]
  - Uterine hypoplasia [Recovered/Resolved with Sequelae]
  - Thrombocytopenia-absent radius syndrome [Recovered/Resolved with Sequelae]
  - Roberts syndrome [Recovered/Resolved with Sequelae]
  - Congenital musculoskeletal anomaly [Recovered/Resolved with Sequelae]
  - Congenital intestinal malformation [Recovered/Resolved with Sequelae]
  - Pulmonary malformation [Recovered/Resolved with Sequelae]
  - Single umbilical artery [Recovered/Resolved with Sequelae]
  - Renal hypoplasia [Recovered/Resolved with Sequelae]
  - Ventricular septal defect [Recovered/Resolved with Sequelae]
  - Congenital ureteric anomaly [Recovered/Resolved with Sequelae]
  - Ear malformation [Recovered/Resolved with Sequelae]
  - Foetal exposure during pregnancy [Recovered/Resolved with Sequelae]
  - Congenital cardiovascular anomaly [Recovered/Resolved with Sequelae]

NARRATIVE: CASE EVENT DATE: 2020
